FAERS Safety Report 6994325-3 (Version None)
Quarter: 2010Q3

REPORT INFORMATION
  Report Type: 
  Country: None (occurrence: None)
  Receive Date: 20100917
  Receipt Date: 20100915
  Transmission Date: 20110219
  Serious: Yes (Life-Threatening)
  Sender: FDA-Public Use
  Company Number: PHHY2010US61463

PATIENT
  Sex: Female

DRUGS (14)
  1. RECLAST [Suspect]
     Dosage: 5 MG
     Route: 042
  2. BONIVA [Concomitant]
  3. COMBIVENT [Concomitant]
  4. ADVAIR DISKUS 100/50 [Concomitant]
  5. SPIRIVA [Concomitant]
  6. LASIX [Concomitant]
  7. POTASSIUM [Concomitant]
  8. ZOCOR [Concomitant]
  9. BENTYL [Concomitant]
  10. TENEX [Concomitant]
  11. MORPHINE [Concomitant]
  12. BACLOFEN [Concomitant]
  13. PREMARIN [Concomitant]
  14. FOSAMAX [Concomitant]

REACTIONS (10)
  - BLISTER [None]
  - BONE DISORDER [None]
  - CATARACT OPERATION [None]
  - FEBRILE CONVULSION [None]
  - HOMICIDAL IDEATION [None]
  - LACRIMAL DISORDER [None]
  - PANIC ATTACK [None]
  - POST-TRAUMATIC STRESS DISORDER [None]
  - PRURITUS [None]
  - WHEELCHAIR USER [None]
